FAERS Safety Report 21754547 (Version 2)
Quarter: 2023Q1

REPORT INFORMATION
  Report Type: Report from Study
  Country: US (occurrence: US)
  Receive Date: 20221220
  Receipt Date: 20230327
  Transmission Date: 20230418
  Serious: No
  Sender: FDA-Public Use
  Company Number: US-ABBVIE-4198050

PATIENT
  Sex: Female

DRUGS (1)
  1. RINVOQ [Suspect]
     Active Substance: UPADACITINIB
     Indication: Rheumatoid arthritis
     Route: 048
     Dates: start: 20201115

REACTIONS (4)
  - Rheumatoid arthritis [Not Recovered/Not Resolved]
  - Paraesthesia [Unknown]
  - Musculoskeletal disorder [Unknown]
  - Alopecia [Unknown]
